FAERS Safety Report 23590399 (Version 1)
Quarter: 2024Q1

REPORT INFORMATION
  Report Type: Spontaneous
  Country: US (occurrence: US)
  Receive Date: 20240304
  Receipt Date: 20240304
  Transmission Date: 20240410
  Serious: No
  Sender: FDA-Public Use
  Company Number: US-BIOGEN-2024BI01247552

PATIENT
  Sex: Female

DRUGS (1)
  1. TYSABRI [Suspect]
     Active Substance: NATALIZUMAB
     Indication: Multiple sclerosis
     Route: 050
     Dates: start: 20101101, end: 20230706

REACTIONS (3)
  - Nasopharyngitis [Not Recovered/Not Resolved]
  - Memory impairment [Unknown]
  - Rubber sensitivity [Not Recovered/Not Resolved]
